FAERS Safety Report 17669559 (Version 6)
Quarter: 2020Q3

REPORT INFORMATION
  Report Type: Other
  Country: CA (occurrence: CA)
  Receive Date: 20200415
  Receipt Date: 20200731
  Transmission Date: 20201102
  Serious: Yes (Hospitalization)
  Sender: FDA-Public Use
  Company Number: CA-ROCHE-2551115

PATIENT
  Age: 57 Year
  Sex: Female

DRUGS (5)
  1. OCREVUS [Suspect]
     Active Substance: OCRELIZUMAB
     Indication: RELAPSING-REMITTING MULTIPLE SCLEROSIS
     Dosage: 300 MG ON DAY 0 AND 14 THEN 600 MG EVERY 6 MONTH.
     Route: 042
     Dates: start: 20181203
  2. PREDNISONE. [Concomitant]
     Active Substance: PREDNISONE
  3. GRAVOL [Concomitant]
     Active Substance: DIMENHYDRINATE
  4. MACROBID [Suspect]
     Active Substance: NITROFURANTOIN\NITROFURANTOIN MONOHYDRATE
     Dosage: TWICE DAILY X 10 DAYS
     Route: 065
     Dates: start: 20200406
  5. MACROBID [Suspect]
     Active Substance: NITROFURANTOIN\NITROFURANTOIN MONOHYDRATE
     Indication: URINARY TRACT INFECTION
     Route: 065
     Dates: start: 20200106, end: 20200112

REACTIONS (5)
  - Pancreatitis chronic [Unknown]
  - Throat irritation [Not Recovered/Not Resolved]
  - Wrong product administered [Unknown]
  - Illness [Unknown]
  - Urinary tract infection [Recovered/Resolved]

NARRATIVE: CASE EVENT DATE: 20200106
